FAERS Safety Report 15985887 (Version 2)
Quarter: 2019Q1

REPORT INFORMATION
  Report Type: Spontaneous
  Country: US (occurrence: US)
  Receive Date: 20190220
  Receipt Date: 20190305
  Transmission Date: 20190418
  Serious: Yes (Death)
  Sender: FDA-Public Use
  Company Number: US-EMERGENT BIOSOLUTIONS CANADA INC.-19000028LT

PATIENT
  Age: 54 Year
  Sex: Male

DRUGS (1)
  1. BAT [Suspect]
     Active Substance: EQUINE BOTULINUM NEUROTOXIN A/B/C/D/E/F/G IMMUNE FAB2
     Indication: BOTULISM
     Dosage: UNK, SINGLE
     Dates: start: 20190102

REACTIONS (1)
  - Brain injury [Fatal]

NARRATIVE: CASE EVENT DATE: 20190115
